FAERS Safety Report 14553144 (Version 2)
Quarter: 2018Q2

REPORT INFORMATION
  Report Type: Other
  Country: CA (occurrence: CA)
  Receive Date: 20180220
  Receipt Date: 20180422
  Transmission Date: 20180711
  Serious: Yes (Other)
  Sender: FDA-Public Use
  Company Number: CA-APOTEX-2018AP006505

PATIENT
  Age: 40 Year
  Sex: Female

DRUGS (8)
  1. ACYCLOVIR. [Suspect]
     Active Substance: ACYCLOVIR
     Indication: PROPHYLAXIS
     Dosage: 200 MG, BID
     Route: 048
  2. ALEMTUZUMAB [Suspect]
     Active Substance: ALEMTUZUMAB
     Indication: RELAPSING-REMITTING MULTIPLE SCLEROSIS
     Dosage: 12 MG, QD
     Route: 041
  3. BENADRYL [Concomitant]
     Active Substance: DIPHENHYDRAMINE HYDROCHLORIDE
     Indication: PRODUCT USED FOR UNKNOWN INDICATION
     Dosage: 50 MG, UNK
     Route: 048
  4. GRAVOL [Concomitant]
     Active Substance: DIMENHYDRINATE
     Indication: PRODUCT USED FOR UNKNOWN INDICATION
     Dosage: 50 MG, UNK
     Route: 048
  5. REACTINE                           /00884302/ [Concomitant]
     Active Substance: CETIRIZINE HYDROCHLORIDE
     Indication: PROPHYLAXIS
     Dosage: 10 MG, BID
     Route: 048
  6. TYLENOL [Concomitant]
     Active Substance: ACETAMINOPHEN
     Indication: PRODUCT USED FOR UNKNOWN INDICATION
     Dosage: 1000 MG, UNK
     Route: 048
  7. METHYLPREDNISOLONE. [Concomitant]
     Active Substance: METHYLPREDNISOLONE
     Indication: PRODUCT USED FOR UNKNOWN INDICATION
     Dosage: 1 G, UNK
     Route: 042
  8. RANITIDINE. [Concomitant]
     Active Substance: RANITIDINE
     Indication: PROPHYLAXIS
     Dosage: 150 MG, BID
     Route: 048

REACTIONS (20)
  - Leukocyturia [Not Recovered/Not Resolved]
  - Haemoglobin urine present [Not Recovered/Not Resolved]
  - Dizziness [Not Recovered/Not Resolved]
  - Cushingoid [Not Recovered/Not Resolved]
  - Nuclear magnetic resonance imaging abnormal [Not Recovered/Not Resolved]
  - White blood cell count decreased [Not Recovered/Not Resolved]
  - Flushing [Not Recovered/Not Resolved]
  - Menorrhagia [Not Recovered/Not Resolved]
  - Urine abnormality [Not Recovered/Not Resolved]
  - Headache [Not Recovered/Not Resolved]
  - Contusion [Not Recovered/Not Resolved]
  - Laboratory test abnormal [Not Recovered/Not Resolved]
  - Platelet count decreased [Not Recovered/Not Resolved]
  - Lymphocyte count decreased [Not Recovered/Not Resolved]
  - Multiple sclerosis relapse [Not Recovered/Not Resolved]
  - White blood cells urine positive [Not Recovered/Not Resolved]
  - Dyspnoea [Not Recovered/Not Resolved]
  - Immune thrombocytopenic purpura [Not Recovered/Not Resolved]
  - Blood urine present [Not Recovered/Not Resolved]
  - Red blood cells urine positive [Not Recovered/Not Resolved]
